FAERS Safety Report 7883028-9 (Version None)
Quarter: 2011Q4

REPORT INFORMATION
  Report Type: 
  Country: None (occurrence: None)
  Receive Date: 20111102
  Receipt Date: 20111025
  Transmission Date: 20120403
  Serious: Yes (Hospitalization)
  Sender: FDA-Public Use
  Company Number: US-BIOGENIDEC-2011BI040891

PATIENT
  Age: 51 Year
  Sex: Female

DRUGS (2)
  1. AVONEX [Concomitant]
     Indication: MULTIPLE SCLEROSIS
     Route: 030
     Dates: start: 19960801
  2. TYSABRI [Suspect]
     Indication: MULTIPLE SCLEROSIS
     Route: 042
     Dates: start: 20080521, end: 20110627

REACTIONS (3)
  - MUSCULOSKELETAL DISORDER [None]
  - DRUG INEFFECTIVE [None]
  - RELAPSING-REMITTING MULTIPLE SCLEROSIS [None]
